FAERS Safety Report 12061338 (Version 1)
Quarter: 2016Q1

REPORT INFORMATION
  Report Type: Spontaneous
  Country: US (occurrence: US)
  Receive Date: 20160210
  Receipt Date: 20160210
  Transmission Date: 20160526
  Serious: Yes (Other)
  Sender: FDA-Public Use
  Company Number: US-BAYER-2016-024469

PATIENT
  Age: 22 Year
  Sex: Female

DRUGS (1)
  1. GIANVI [Suspect]
     Active Substance: DROSPIRENONE\ETHINYL ESTRADIOL
     Dosage: UNK
     Route: 048
     Dates: start: 201409, end: 20160201

REACTIONS (6)
  - Migraine [None]
  - Muscle spasms [None]
  - Urticaria [None]
  - Malaise [None]
  - Gallbladder non-functioning [None]
  - Rash [None]

NARRATIVE: CASE EVENT DATE: 201412
